FAERS Safety Report 23261324 (Version 2)
Quarter: 2024Q1

REPORT INFORMATION
  Report Type: Report from Study
  Country: US (occurrence: US)
  Receive Date: 20231205
  Receipt Date: 20240214
  Transmission Date: 20240409
  Serious: Yes (Other)
  Sender: FDA-Public Use
  Company Number: US-TAKEDA-2023TUS112783

PATIENT
  Sex: Female
  Weight: 42 kg

DRUGS (3)
  1. VEDOLIZUMAB [Suspect]
     Active Substance: VEDOLIZUMAB
     Indication: Crohn^s disease
     Dosage: 300 MILLIGRAM
     Route: 042
     Dates: start: 20230928
  2. MAGNESIUM [Concomitant]
     Active Substance: MAGNESIUM
     Dosage: UNK
  3. OXYCODONE [Concomitant]
     Active Substance: OXYCODONE\OXYCODONE HYDROCHLORIDE
     Indication: Pain
     Dosage: UNK UNK, QD

REACTIONS (24)
  - Vascular device infection [Unknown]
  - Dry mouth [Unknown]
  - Pain [Unknown]
  - Myalgia [Unknown]
  - Bone pain [Unknown]
  - Nasal ulcer [Unknown]
  - Aphonia [Unknown]
  - Increased tendency to bruise [Unknown]
  - Skin atrophy [Unknown]
  - Weight decreased [Unknown]
  - Trigger finger [Unknown]
  - Poor venous access [Unknown]
  - Rash macular [Unknown]
  - White blood cell count increased [Unknown]
  - Haemorrhagic diathesis [Unknown]
  - Off label use [Unknown]
  - Hyperhidrosis [Unknown]
  - Eczema [Unknown]
  - Chills [Unknown]
  - Back pain [Unknown]
  - Oropharyngeal pain [Unknown]
  - Pain in extremity [Unknown]
  - Fatigue [Unknown]
  - Pruritus [Unknown]
